FAERS Safety Report 6223469-9 (Version None)
Quarter: 2009Q2

REPORT INFORMATION
  Report Type: 
  Country: None (occurrence: None)
  Receive Date: 20090611
  Receipt Date: 20090602
  Transmission Date: 20091009
  Serious: Yes (Hospitalization)
  Sender: FDA-Public Use
  Company Number: US-AMGEN-US347089

PATIENT
  Sex: Male

DRUGS (3)
  1. NPLATE [Suspect]
     Indication: IDIOPATHIC THROMBOCYTOPENIC PURPURA
     Route: 058
     Dates: start: 20081108, end: 20081118
  2. IMMUNOGLOBULINS [Concomitant]
     Dates: start: 20081010, end: 20081103
  3. PREDNISONE [Concomitant]
     Route: 065
     Dates: start: 20081006, end: 20081115

REACTIONS (1)
  - PNEUMONIA [None]
